FAERS Safety Report 24113174 (Version 1)
Quarter: 2024Q3

REPORT INFORMATION
  Report Type: Spontaneous
  Country: FR (occurrence: FR)
  Receive Date: 20240719
  Receipt Date: 20240719
  Transmission Date: 20241017
  Serious: Yes (Other)
  Sender: AMGEN
  Company Number: None

PATIENT
  Age: 56 Year
  Sex: Male
  Weight: 97 kg

DRUGS (1)
  1. ADALIMUMAB [Suspect]
     Active Substance: ADALIMUMAB\ISOPROPYL ALCOHOL
     Indication: Crohn^s disease
     Dosage: 1 EVERY 15 DAYS
     Route: 058

REACTIONS (5)
  - Erectile dysfunction [Not Recovered/Not Resolved]
  - Weight increased [Not Recovered/Not Resolved]
  - Rhinitis [Not Recovered/Not Resolved]
  - Skin papilloma [Not Recovered/Not Resolved]
  - Off label use [Unknown]

NARRATIVE: CASE EVENT DATE: 20220101
